FAERS Safety Report 8978385 (Version 1)
Quarter: 2012Q4

REPORT INFORMATION
  Report Type: 
  Country: IT (occurrence: GB)
  Receive Date: 20121220
  Receipt Date: 20121220
  Transmission Date: 20130627
  Serious: Yes (Hospitalization)
  Sender: FDA-Public Use
  Company Number: IT-WATSON-2012-22286

PATIENT
  Age: 91 Year
  Sex: Female

DRUGS (7)
  1. SERTRALINE HYDROCHLORIDE (UNKNOWN) [Suspect]
     Indication: DEPRESSION
     Dosage: 50 mg, unknown
     Route: 048
     Dates: start: 20121204, end: 20121204
  2. MINIAS [Suspect]
     Indication: DEPRESSION
     Dosage: 25 drops daily
     Route: 048
     Dates: start: 20121013, end: 20121204
  3. LASIX                              /00032601/ [Concomitant]
     Indication: PRODUCT USED FOR UNKNOWN INDICATION
     Dosage: unknown
     Route: 065
     Dates: start: 20121013, end: 20121204
  4. VENITRIN [Concomitant]
     Indication: PRODUCT USED FOR UNKNOWN INDICATION
     Dosage: unknown
     Route: 065
     Dates: start: 20121013, end: 20121204
  5. GLUCOBAY [Concomitant]
     Indication: PRODUCT USED FOR UNKNOWN INDICATION
     Dosage: unknown
     Route: 065
     Dates: start: 20121013, end: 20121204
  6. CARDIOASPIRIN [Concomitant]
     Indication: PRODUCT USED FOR UNKNOWN INDICATION
     Dosage: unknown
     Route: 065
     Dates: start: 20121013, end: 20121204
  7. LANSOPRAZOLE [Concomitant]
     Indication: PRODUCT USED FOR UNKNOWN INDICATION
     Dosage: unknown
     Route: 065
     Dates: start: 20121013, end: 20121204

REACTIONS (3)
  - Psychomotor retardation [Recovering/Resolving]
  - Sopor [Recovering/Resolving]
  - Toxicity to various agents [Recovering/Resolving]
